FAERS Safety Report 5803794-3 (Version None)
Quarter: 2008Q3

REPORT INFORMATION
  Report Type: 
  Country: None (occurrence: None)
  Receive Date: 20080708
  Receipt Date: 20080415
  Transmission Date: 20090109
  Serious: No
  Sender: FDA-Public Use
  Company Number: US-AMGEN-KDL265146

PATIENT
  Sex: Female

DRUGS (7)
  1. KINERET [Suspect]
     Indication: JUVENILE ARTHRITIS
     Route: 058
     Dates: start: 20080121
  2. PLAQUENIL [Concomitant]
     Dates: start: 19900101
  3. METHOTREXATE [Concomitant]
     Dates: start: 19880101
  4. INDOCIN [Concomitant]
  5. PROTONIX [Concomitant]
  6. TYLENOL [Concomitant]
  7. BALSALAZIDE DISODIUM [Concomitant]

REACTIONS (4)
  - INJECTION SITE ERYTHEMA [None]
  - INJECTION SITE PRURITUS [None]
  - INJECTION SITE REACTION [None]
  - INJECTION SITE SWELLING [None]
